FAERS Safety Report 13936961 (Version 1)
Quarter: 2017Q3

REPORT INFORMATION
  Report Type: Spontaneous
  Country: JP (occurrence: JP)
  Receive Date: 20170905
  Receipt Date: 20170905
  Transmission Date: 20171127
  Serious: Yes (Hospitalization)
  Sender: FDA-Public Use
  Company Number: GXJP2017JP001365

PATIENT
  Age: 62 Year
  Sex: Male

DRUGS (3)
  1. 5-FU [Suspect]
     Active Substance: FLUOROURACIL
     Indication: OESOPHAGEAL CARCINOMA
     Route: 065
  2. DOCETAXEL INTRAVENOUS INFUSION 20MG/2ML [Suspect]
     Active Substance: DOCETAXEL
     Indication: OESOPHAGEAL CARCINOMA
     Dosage: 20MG/2ML
     Route: 065
  3. CISPLATIN. [Suspect]
     Active Substance: CISPLATIN
     Indication: OESOPHAGEAL CARCINOMA
     Route: 065

REACTIONS (4)
  - Depressed level of consciousness [Recovering/Resolving]
  - Intracranial tumour haemorrhage [Recovering/Resolving]
  - Headache [Recovering/Resolving]
  - Intracranial pressure increased [Recovering/Resolving]
